FAERS Safety Report 22370312 (Version 1)
Quarter: 2023Q2

REPORT INFORMATION
  Report Type: Report from Study
  Country: US (occurrence: US)
  Receive Date: 20230526
  Receipt Date: 20230526
  Transmission Date: 20230721
  Serious: Yes (Hospitalization)
  Sender: FDA-Public Use
  Company Number: US-ABBVIE-5180190

PATIENT
  Sex: Male

DRUGS (1)
  1. RINVOQ [Suspect]
     Active Substance: UPADACITINIB
     Indication: Product used for unknown indication
     Dosage: FIRST ADMIN DATE: 17 APR 2023
     Route: 048
     Dates: end: 20230502

REACTIONS (1)
  - Colectomy [Recovering/Resolving]

NARRATIVE: CASE EVENT DATE: 20230101
